FAERS Safety Report 19064142 (Version 1)
Quarter: 2021Q1

REPORT INFORMATION
  Report Type: Spontaneous
  Country: US (occurrence: US)
  Receive Date: 20210326
  Receipt Date: 20210326
  Transmission Date: 20210420
  Serious: Yes (Other)
  Sender: FDA-Public Use
  Company Number: US-BAYER-2021-111612

PATIENT
  Age: 31 Year
  Sex: Male

DRUGS (3)
  1. KOGENATE FS [Suspect]
     Active Substance: ANTIHEMOPHILIC FACTOR, HUMAN RECOMBINANT
     Dosage: TREATED FOR THE ACTIVE BLEED
     Dates: start: 20210318, end: 20210319
  2. KOGENATE FS [Suspect]
     Active Substance: ANTIHEMOPHILIC FACTOR, HUMAN RECOMBINANT
     Dosage: AS PREVENTATIVE
     Dates: start: 20210320
  3. KOGENATE FS [Suspect]
     Active Substance: ANTIHEMOPHILIC FACTOR, HUMAN RECOMBINANT
     Dosage: 2090 U
     Route: 042

REACTIONS (2)
  - Limb injury [None]
  - Traumatic haemorrhage [None]

NARRATIVE: CASE EVENT DATE: 202103
